FAERS Safety Report 15406406 (Version 1)
Quarter: 2018Q3

REPORT INFORMATION
  Report Type: Spontaneous
  Country: US (occurrence: US)
  Receive Date: 20180917
  Receipt Date: 20180917
  Transmission Date: 20181010
  Serious: No
  Sender: FDA-Public Use
  Company Number: None

PATIENT
  Age: 48 Year
  Sex: Male

DRUGS (2)
  1. OPSUMIT [Suspect]
     Active Substance: MACITENTAN
  2. ADEMPAS [Concomitant]
     Active Substance: RIOCIGUAT

REACTIONS (1)
  - Cellulitis [None]

NARRATIVE: CASE EVENT DATE: 20180808
